FAERS Safety Report 17935144 (Version 4)
Quarter: 2020Q3

REPORT INFORMATION
  Report Type: Spontaneous
  Country: US (occurrence: US)
  Receive Date: 20200624
  Receipt Date: 20200729
  Transmission Date: 20201103
  Serious: No
  Sender: FDA-Public Use
  Company Number: US-PFIZER INC-2020243439

PATIENT
  Age: 79 Year
  Sex: Female

DRUGS (1)
  1. AMLODIPINE BESILATE [Suspect]
     Active Substance: AMLODIPINE BESYLATE
     Indication: HYPERTENSION
     Dosage: UNK

REACTIONS (5)
  - Drug intolerance [Unknown]
  - Dizziness [Unknown]
  - Illness [Unknown]
  - Drug ineffective [Unknown]
  - Asthenia [Unknown]
